FAERS Safety Report 4355268-7 (Version None)
Quarter: 2004Q2

REPORT INFORMATION
  Report Type: 
  Country: None (occurrence: None)
  Receive Date: 20040505
  Receipt Date: 20040423
  Transmission Date: 20050107
  Serious: Yes (Other)
  Sender: FDA-Public Use
  Company Number: 204938

PATIENT
  Age: 63 Year
  Sex: Male
  Weight: 71 kg

DRUGS (5)
  1. MABTHERA (RITUXIMAB) CONC FOR SOLUTION FOR INFUSION [Suspect]
     Indication: LYMPHOMA
     Dosage: UNIT, X4, INTRAVENOUS
     Route: 042
     Dates: start: 20030408, end: 20030612
  2. CYCLOPHOSPHAMIDE [Concomitant]
  3. DOXORUBICIN HYDROCHLORIDE [Concomitant]
  4. VINCRISTINE [Concomitant]
  5. PREDNISONE [Concomitant]

REACTIONS (4)
  - ADENOCARCINOMA [None]
  - LUNG NEOPLASM MALIGNANT [None]
  - METASTASES TO SPINE [None]
  - PNEUMOTHORAX [None]
